FAERS Safety Report 8896270 (Version 7)
Quarter: 2014Q3

REPORT INFORMATION
  Report Type: Spontaneous
  Country: IL (occurrence: None)
  Receive Date: 20121031
  Receipt Date: 20140711
  Transmission Date: 20150326
  Serious: Yes (Hospitalization)
  Sender: FDA-Public Use
  Company Number: VAL_00944_2012

PATIENT
  Age: 56 Year
  Sex: Male
  Weight: 84 kg

DRUGS (14)
  1. CARDILOC [Concomitant]
     Active Substance: BISOPROLOL FUMARATE
  2. ATORVASTATIN [Concomitant]
     Active Substance: ATORVASTATIN
  3. RAMIPRIL. [Concomitant]
     Active Substance: RAMIPRIL
  4. PLAVIX [Concomitant]
     Active Substance: CLOPIDOGREL BISULFATE
  5. TAMSULOSIN [Concomitant]
     Active Substance: TAMSULOSIN
  6. BISOPROLOL [Suspect]
     Active Substance: BISOPROLOL
     Indication: PRODUCT USED FOR UNKNOWN INDICATION
     Dosage: (DF)
  7. COUMADIN [Concomitant]
     Active Substance: WARFARIN SODIUM
  8. EZETROL [Concomitant]
     Active Substance: EZETIMIBE
  9. BEZAFIBRATE [Concomitant]
     Active Substance: BEZAFIBRATE
  10. ASPIRIN. [Concomitant]
     Active Substance: ASPIRIN
  11. METOPROLOL [Suspect]
     Active Substance: METOPROLOL
     Indication: CARDIAC FAILURE CHRONIC
     Dates: start: 20121009
  12. LCZ696 VS ENALAPRIL (CODE NOT BROKEN) [Suspect]
     Active Substance: ENALAPRIL
     Indication: CARDIAC FAILURE CHRONIC
     Dosage: (DF ORAL)
     Route: 048
     Dates: start: 20120916, end: 20121014
  13. ROSUVASTATIN [Concomitant]
     Active Substance: ROSUVASTATIN
  14. SPIRONOLACTONE. [Concomitant]
     Active Substance: SPIRONOLACTONE

REACTIONS (9)
  - Ventricular tachycardia [None]
  - Palpitations [None]
  - Troponin increased [None]
  - Coronary artery restenosis [None]
  - Fatigue [None]
  - Chest discomfort [None]
  - Angina unstable [None]
  - Shock [None]
  - Acute coronary syndrome [None]

NARRATIVE: CASE EVENT DATE: 20121009
